FAERS Safety Report 11200811 (Version 1)
Quarter: 2015Q2

REPORT INFORMATION
  Report Type: Report from Study
  Country: US (occurrence: US)
  Receive Date: 20150618
  Receipt Date: 20150618
  Transmission Date: 20150821
  Serious: Yes (Hospitalization)
  Sender: FDA-Public Use
  Company Number: US-ACTELION-A-US2015-119317

PATIENT
  Age: 53 Year
  Sex: Female

DRUGS (18)
  1. TEMAZEPAM. [Concomitant]
     Active Substance: TEMAZEPAM
     Dosage: 15 MG, UNK
     Dates: start: 20150527
  2. SILDENAFIL. [Concomitant]
     Active Substance: SILDENAFIL
     Dosage: 20 MG, UNK
     Dates: start: 20150526
  3. BUTALBITAL/ASA/CAFFEINE [Concomitant]
     Dosage: UNK
     Dates: start: 20150310
  4. LEVALBUTEROL [Concomitant]
     Active Substance: LEVALBUTEROL
     Dosage: UNK
     Dates: start: 20150526
  5. KETOROLAC [Concomitant]
     Active Substance: KETOROLAC\KETOROLAC TROMETHAMINE
     Dosage: UNK
     Dates: start: 20140505
  6. BUTALBITAL AND ACETAMINOPHEN [Concomitant]
     Active Substance: ACETAMINOPHEN\BUTALBITAL
     Dosage: UNK
     Dates: start: 20150526
  7. IBUPROFEN. [Concomitant]
     Active Substance: IBUPROFEN
     Dosage: 800 MG, UNK
     Dates: start: 20150602
  8. LOSARTAN AND HYDROCHLOROTHIAZIDE [Concomitant]
     Active Substance: HYDROCHLOROTHIAZIDE\LOSARTAN POTASSIUM
     Dosage: UNK
     Dates: start: 20150314
  9. LISINOPRIL. [Concomitant]
     Active Substance: LISINOPRIL
     Dosage: 20 MG, UNK
     Dates: start: 20150310
  10. ALPRAZOLAM. [Concomitant]
     Active Substance: ALPRAZOLAM
     Dosage: 0.5 MG, UNK
     Dates: start: 20150310
  11. MONTELUKAST [Concomitant]
     Active Substance: MONTELUKAST SODIUM
     Dosage: 10 MG, UNK
     Dates: start: 20150603
  12. TEMAZEPAM. [Concomitant]
     Active Substance: TEMAZEPAM
     Dosage: 30 UNK, UNK
     Dates: start: 20150310
  13. CLONIDINE. [Concomitant]
     Active Substance: CLONIDINE
     Dosage: 0.1 MG, UNK
     Dates: start: 20150314
  14. MACITENTAN [Suspect]
     Active Substance: MACITENTAN
     Indication: PULMONARY ARTERIAL HYPERTENSION
     Dosage: 10 MG, QD
     Route: 048
     Dates: start: 20150512
  15. HYDROCODONE BITARTRATE AND ACETAMINOPHEN [Concomitant]
     Active Substance: ACETAMINOPHEN\HYDROCODONE BITARTRATE
     Dosage: UNK
     Dates: start: 20150602
  16. IPRATROPIUM [Concomitant]
     Active Substance: IPRATROPIUM
     Dosage: UNK
     Dates: start: 20150529
  17. CIPRODEX [Concomitant]
     Active Substance: CIPROFLOXACIN HYDROCHLORIDE\DEXAMETHASONE
     Dosage: UNK
     Dates: start: 20140822
  18. VOLTAREN [Concomitant]
     Active Substance: DICLOFENAC SODIUM

REACTIONS (6)
  - Bronchitis [Recovering/Resolving]
  - Throat tightness [Not Recovered/Not Resolved]
  - Gastrooesophageal reflux disease [Not Recovered/Not Resolved]
  - Dyspnoea [Recovering/Resolving]
  - White blood cell count increased [Recovering/Resolving]
  - Asthma [Unknown]

NARRATIVE: CASE EVENT DATE: 20150512
